FAERS Safety Report 7055852-6 (Version None)
Quarter: 2010Q4

REPORT INFORMATION
  Report Type: 
  Country: None (occurrence: None)
  Receive Date: 20101021
  Receipt Date: 20101018
  Transmission Date: 20110411
  Serious: Yes (Hospitalization)
  Sender: FDA-Public Use
  Company Number: KR-EISAI INC.-E2020-07631-SPO-KR

PATIENT
  Age: 82 Year
  Sex: Female

DRUGS (3)
  1. ARICEPT [Suspect]
     Indication: VASCULAR DEMENTIA
     Route: 048
     Dates: start: 20091228
  2. ASPIRIN [Concomitant]
     Indication: PROPHYLAXIS
     Route: 048
     Dates: start: 20091228
  3. NORTRIPTYLINE [Concomitant]
     Indication: HEADACHE
     Route: 048
     Dates: start: 20091228

REACTIONS (1)
  - GASTRIC CANCER [None]
